FAERS Safety Report 9586486 (Version 1)
Quarter: 2013Q4

REPORT INFORMATION
  Report Type: Report from Study
  Country: PT (occurrence: PT)
  Receive Date: 20131003
  Receipt Date: 20131003
  Transmission Date: 20140711
  Serious: Yes (Hospitalization)
  Sender: FDA-Public Use
  Company Number: PHHY2013PT109644

PATIENT
  Age: 47 Year
  Sex: Female

DRUGS (1)
  1. EXTAVIA [Suspect]
     Indication: MULTIPLE SCLEROSIS
     Dosage: 250 ?L/ML, EVERY OTHER DAY
     Route: 058
     Dates: start: 20010601

REACTIONS (2)
  - Gait disturbance [Recovered/Resolved]
  - Back pain [Recovering/Resolving]
